FAERS Safety Report 16335058 (Version 1)
Quarter: 2019Q2

REPORT INFORMATION
  Report Type: Spontaneous
  Country: DE (occurrence: DE)
  Receive Date: 20190520
  Receipt Date: 20190520
  Transmission Date: 20190711
  Serious: Yes (Other)
  Sender: FDA-Public Use
  Company Number: DE-CONCORDIA PHARMACEUTICALS INC.-GSH201905-001423

PATIENT
  Sex: Female
  Weight: 68 kg

DRUGS (1)
  1. HYDROXYCHLOROQUINE 200 MG TABLET [Suspect]
     Active Substance: HYDROXYCHLOROQUINE
     Dosage: UNKNOWN
     Route: 065

REACTIONS (4)
  - Stress [Unknown]
  - Abdominal pain upper [Unknown]
  - Haematochezia [Unknown]
  - Diarrhoea [Unknown]
